FAERS Safety Report 4488876-3 (Version None)
Quarter: 2004Q4

REPORT INFORMATION
  Report Type: 
  Country: None (occurrence: None)
  Receive Date: 20041029
  Receipt Date: 20041021
  Transmission Date: 20050328
  Serious: Yes (Death, Life-Threatening, Hospitalization, Disabling)
  Sender: FDA-Public Use
  Company Number: US-MERCK-0410USA03340

PATIENT
  Age: 41 Year
  Sex: Male

DRUGS (10)
  1. VIOXX [Suspect]
     Indication: PAIN MANAGEMENT
     Route: 048
     Dates: start: 20000101, end: 20040301
  2. LORTAB [Concomitant]
     Route: 065
  3. SOMA [Concomitant]
     Route: 065
  4. XANAX [Concomitant]
     Route: 065
  5. ZOCOR [Concomitant]
     Route: 048
  6. ENALAPRIL MALEATE [Concomitant]
     Route: 048
  7. PRILOSEC [Concomitant]
     Route: 048
  8. PAXIL [Concomitant]
     Route: 065
  9. WELLBUTRIN [Concomitant]
     Route: 065
  10. NORVASC [Concomitant]
     Route: 065

REACTIONS (1)
  - MYOCARDIAL INFARCTION [None]
